FAERS Safety Report 4662188-7 (Version None)
Quarter: 2005Q2

REPORT INFORMATION
  Report Type: 
  Country: None (occurrence: None)
  Receive Date: 20050516
  Receipt Date: 20050504
  Transmission Date: 20051028
  Serious: Yes (Hospitalization)
  Sender: FDA-Public Use
  Company Number: DE-BRISTOL-MYERS SQUIBB COMPANY-12958435

PATIENT
  Age: 50 Year
  Sex: Female
  Weight: 70 kg

DRUGS (4)
  1. TAXOL [Suspect]
     Indication: BREAST CANCER
     Route: 042
     Dates: start: 20050313, end: 20050313
  2. EPIRUBICIN [Suspect]
     Indication: BREAST CANCER
     Route: 042
     Dates: start: 20050330, end: 20050330
  3. NEORECORMON [Concomitant]
     Route: 042
     Dates: start: 20050302
  4. NEULASTA [Concomitant]
     Route: 042
     Dates: start: 20050302

REACTIONS (1)
  - UTERINE LEIOMYOMA [None]
